FAERS Safety Report 11868419 (Version 2)
Quarter: 2016Q1

REPORT INFORMATION
  Report Type: Report from Study
  Country: PL (occurrence: PL)
  Receive Date: 20151224
  Receipt Date: 20160104
  Transmission Date: 20160526
  Serious: Yes (Hospitalization)
  Sender: FDA-Public Use
  Company Number: PL-AMGEN-POLCT2015024954

PATIENT
  Age: 66 Year
  Sex: Female
  Weight: 87.8 kg

DRUGS (29)
  1. INSULIN HUMAN [Concomitant]
     Active Substance: INSULIN HUMAN
     Dosage: UNK
  2. IPP                                /00661201/ [Concomitant]
     Dosage: UNK
  3. AMOKSIKLAV                         /00756801/ [Concomitant]
     Dosage: UNK
  4. FLOXAL [Concomitant]
     Active Substance: OFLOXACIN
     Dosage: UNK
  5. CLEXANE [Concomitant]
     Active Substance: ENOXAPARIN SODIUM
     Dosage: UNK
  6. ZINACEF [Concomitant]
     Active Substance: CEFUROXIME SODIUM
     Dosage: UNK
  7. GLUCOPHAGE [Concomitant]
     Active Substance: METFORMIN HYDROCHLORIDE
     Dosage: UNK
  8. PREFILLED AUTOINJECTOR/PEN [Suspect]
     Active Substance: DEVICE
     Indication: DYSLIPIDAEMIA
     Dosage: UNK
     Route: 058
     Dates: start: 20140228
  9. LEVEMIR [Concomitant]
     Active Substance: INSULIN DETEMIR
     Dosage: UNK
  10. ENCORTON                           /00044701/ [Concomitant]
     Dosage: UNK
  11. GENSULIN N [Concomitant]
     Dosage: UNK
  12. SULFACETAMID [Concomitant]
     Dosage: UNK
  13. PADOLTEN [Concomitant]
     Dosage: UNK
  14. ATORIS [Concomitant]
     Active Substance: ATORVASTATIN CALCIUM
     Dosage: 40 MG, UNK
     Dates: start: 20140123
  15. MULTILAC SYNBIOTIC [Concomitant]
     Dosage: UNK
  16. SPIRONOL [Concomitant]
     Active Substance: SPIRONOLACTONE
     Dosage: UNK
  17. PRIMACOR                           /00995601/ [Concomitant]
     Dosage: UNK
  18. VIVACOR                            /00802602/ [Concomitant]
     Dosage: UNK
  19. POLOCARD [Concomitant]
     Active Substance: ASPIRIN
     Dosage: UNK
  20. HUMALOG [Concomitant]
     Active Substance: INSULIN LISPRO
     Dosage: UNK
  21. PRINIVIL [Concomitant]
     Active Substance: LISINOPRIL
     Dosage: UNK
  22. CIPRONEX                           /00697201/ [Concomitant]
     Dosage: UNK
  23. FUROSEMIDE. [Concomitant]
     Active Substance: FUROSEMIDE
     Dosage: UNK
  24. MILURIT [Concomitant]
     Active Substance: ALLOPURINOL
     Dosage: UNK
  25. GROPRINOSIN [Concomitant]
     Dosage: UNK
  26. ROMAZIC [Concomitant]
     Dosage: UNK
  27. XALOPTIC [Concomitant]
     Dosage: UNK
  28. AMG 145 [Suspect]
     Active Substance: EVOLOCUMAB
     Indication: DYSLIPIDAEMIA
     Dosage: 140 MG, UNK
     Route: 058
     Dates: start: 20140228
  29. MUCOSOLVAN [Concomitant]
     Active Substance: AMBROXOL HYDROCHLORIDE
     Dosage: UNK

REACTIONS (1)
  - Bronchitis [Recovered/Resolved]

NARRATIVE: CASE EVENT DATE: 20150219
